FAERS Safety Report 8507795-6 (Version None)
Quarter: 2012Q3

REPORT INFORMATION
  Report Type: 
  Country: None (occurrence: None)
  Receive Date: 20120713
  Receipt Date: 20120706
  Transmission Date: 20120928
  Serious: No
  Sender: FDA-Public Use
  Company Number: PHHY2012JP055266

PATIENT
  Age: 7 Year
  Sex: Female

DRUGS (4)
  1. CARBAMAZEPINE [Suspect]
     Indication: CLONIC CONVULSION
     Route: 048
  2. GLYCEOL [Concomitant]
  3. MIDAZOLAM [Concomitant]
     Indication: CLONIC CONVULSION
  4. HEPARIN [Concomitant]

REACTIONS (1)
  - DRUG ERUPTION [None]
